FAERS Safety Report 4295840-6 (Version None)
Quarter: 2004Q1

REPORT INFORMATION
  Report Type: 
  Country: None (occurrence: None)
  Receive Date: 20040216
  Receipt Date: 20031118
  Transmission Date: 20041129
  Serious: No
  Sender: FDA-Public Use
  Company Number: US-GLAXOSMITHKLINE-A0440229A

PATIENT
  Sex: Male

DRUGS (4)
  1. LAMICTAL [Suspect]
     Dosage: 100MG PER DAY
     Route: 048
     Dates: start: 20030201
  2. ZOLOFT [Concomitant]
  3. ATIVAN [Concomitant]
  4. GEODON [Concomitant]

REACTIONS (1)
  - SWOLLEN TONGUE [None]
